FAERS Safety Report 5215003-7 (Version None)
Quarter: 2007Q1

REPORT INFORMATION
  Report Type: 
  Country: None (occurrence: None)
  Receive Date: 20070117
  Receipt Date: 20070105
  Transmission Date: 20070707
  Serious: Yes (Disabling)
  Sender: FDA-Public Use
  Company Number: 2006PV000040

PATIENT
  Age: 67 Year
  Sex: Male

DRUGS (6)
  1. DEPOCYT [Suspect]
     Indication: LYMPHOCYTIC LEUKAEMIA
     Dosage: 50 MG;X2;INTH
     Route: 037
     Dates: start: 20060701, end: 20060801
  2. MABTHERA [Concomitant]
  3. IDARUBICIN HCL [Concomitant]
  4. FLUDARABINE [Concomitant]
  5. ARA-C [Concomitant]
  6. NEUPOGEN [Concomitant]

REACTIONS (3)
  - DEAFNESS UNILATERAL [None]
  - TINNITUS [None]
  - VERTIGO [None]
